FAERS Safety Report 8266937-0 (Version None)
Quarter: 2012Q2

REPORT INFORMATION
  Report Type: 
  Country: None (occurrence: None)
  Receive Date: 20120404
  Receipt Date: 20120404
  Transmission Date: 20120825
  Serious: Yes (Hospitalization)
  Sender: FDA-Public Use
  Company Number: None

PATIENT
  Age: 69 Year
  Sex: Female
  Weight: 102 kg

DRUGS (15)
  1. THYROID TAB [Concomitant]
  2. MIRAPEX [Concomitant]
  3. HYDROCODONE BITARTRATE AND ACETAMINOPHEN [Suspect]
     Indication: RHEUMATOID ARTHRITIS
     Dosage: ONE TAB Q4HR PRN PO  RECENT
     Route: 048
  4. ESTRADIOL [Concomitant]
  5. KAPIDEX [Concomitant]
  6. PROGESTERONE [Concomitant]
  7. PRASTERONE [Concomitant]
  8. LYRICA [Concomitant]
  9. DIOVAN [Concomitant]
  10. BYSTOLIC [Concomitant]
  11. PROAIR HFA [Concomitant]
  12. MULTI-VITAMINS [Concomitant]
  13. KLONOPIN [Suspect]
     Dosage: 1 MG QPM PO RECENT
     Route: 048
  14. VESICARE [Concomitant]
  15. FERROUS SULFATE TAB [Concomitant]

REACTIONS (6)
  - RENAL FAILURE [None]
  - HALLUCINATION [None]
  - CONFUSIONAL STATE [None]
  - ENCEPHALOPATHY [None]
  - HYPOPHAGIA [None]
  - POLYMEDICATION [None]
